FAERS Safety Report 7443025-4 (Version None)
Quarter: 2011Q2

REPORT INFORMATION
  Report Type: 
  Country: None (occurrence: None)
  Receive Date: 20110428
  Receipt Date: 20110412
  Transmission Date: 20111010
  Serious: No
  Sender: FDA-Public Use
  Company Number: US-B.I. PHARMACEUTICALS,INC./RIDGEFIELD-2011-BP-01443BP

PATIENT
  Sex: Female

DRUGS (8)
  1. FISH OIL [Concomitant]
     Indication: SUPPLEMENTATION THERAPY
  2. VITAMIN D [Concomitant]
     Indication: SUPPLEMENTATION THERAPY
  3. ESTRACE [Concomitant]
     Indication: HORMONE REPLACEMENT THERAPY
     Dates: end: 20110101
  4. VITAMIN B-12 [Concomitant]
     Indication: SUPPLEMENTATION THERAPY
  5. MICARDIS [Suspect]
     Indication: HYPERTENSION
     Dosage: 40 MG
     Route: 048
     Dates: start: 20100101
  6. MULTI-VITAMIN [Concomitant]
     Indication: SUPPLEMENTATION THERAPY
  7. ASTELIN [Concomitant]
     Indication: HYPERSENSITIVITY
  8. CALCIUM [Concomitant]
     Indication: SUPPLEMENTATION THERAPY

REACTIONS (5)
  - PRURITUS [None]
  - PRURITUS GENERALISED [None]
  - URTICARIA [None]
  - RHINORRHOEA [None]
  - OEDEMA PERIPHERAL [None]
